FAERS Safety Report 24240606 (Version 2)
Quarter: 2024Q3

REPORT INFORMATION
  Report Type: Report from Study
  Country: CH (occurrence: CH)
  Receive Date: 20240822
  Receipt Date: 20240902
  Transmission Date: 20241016
  Serious: Yes (Hospitalization)
  Sender: ABBVIE
  Company Number: CH-ABBVIE-5889449

PATIENT
  Age: 76 Year
  Sex: Male

DRUGS (5)
  1. CARBIDOPA\LEVODOPA [Suspect]
     Active Substance: CARBIDOPA\LEVODOPA
     Indication: Parkinson^s disease
     Dosage: MD: 4.5 ML, CRD: 1.9 ML/H, ED: 1.0 ML. FREQUENCY TEXT: 16H THERAPY
     Route: 050
     Dates: start: 20240814, end: 20240823
  2. CARBIDOPA\LEVODOPA [Suspect]
     Active Substance: CARBIDOPA\LEVODOPA
     Dosage: MD: 4.5 ML, CRD: 1.3 ML/H, ED: 1.0 ML.?FREQUENCY TEXT: 16H THERAPY
     Route: 050
     Dates: start: 20240813, end: 20240814
  3. CARBIDOPA\LEVODOPA [Suspect]
     Active Substance: CARBIDOPA\LEVODOPA
     Dosage: MD: 5.0 ML, CRD: 2.5 ML/H, ED: 1.0 ML?FREQUENCY TEXT: 16H THERAPY
     Route: 050
     Dates: start: 20240828
  4. CARBIDOPA\LEVODOPA [Suspect]
     Active Substance: CARBIDOPA\LEVODOPA
     Dosage: MD: 5.0 ML, CRD: 2.5 ML/H, ED: 1.0 ML?FREQUENCY TEXT: 16H THERAPY?LAST ADMIN DATE: AUG 2024
     Route: 050
     Dates: start: 20240826
  5. CARBIDOPA\LEVODOPA [Suspect]
     Active Substance: CARBIDOPA\LEVODOPA
     Dosage: MD: 4.5 ML, CRD: 2.2 ML/H, ED: 1.0 ML, FREQUENCY TEXT: 16H THERAPY
     Route: 050
     Dates: start: 20240823, end: 20240826

REACTIONS (4)
  - Patient-device incompatibility [Not Recovered/Not Resolved]
  - Somnolence [Not Recovered/Not Resolved]
  - Device use error [Recovered/Resolved]
  - Device dislocation [Not Recovered/Not Resolved]

NARRATIVE: CASE EVENT DATE: 20240801
